FAERS Safety Report 8051805-X (Version None)
Quarter: 2012Q1

REPORT INFORMATION
  Report Type: 
  Country: None (occurrence: None)
  Receive Date: 20120118
  Receipt Date: 20120112
  Transmission Date: 20120608
  Serious: Yes (Other)
  Sender: FDA-Public Use
  Company Number: DE-BRISTOL-MYERS SQUIBB COMPANY-16230997

PATIENT
  Age: 54 Year
  Sex: Male
  Weight: 113 kg

DRUGS (5)
  1. FLUPIRTINE MALEATE [Suspect]
     Indication: BACK PAIN
     Route: 048
  2. AMLODIPINE BESYLATE AND OLMESARTAN MEDOXOMIL [Concomitant]
     Indication: HYPERTENSION
     Dosage: 40/5 MG 1X1
     Route: 048
     Dates: start: 20091120
  3. ONGLYZA [Suspect]
     Indication: DIABETES MELLITUS
     Route: 048
     Dates: start: 20101103, end: 20111028
  4. METFORMIN HCL [Concomitant]
     Indication: DIABETES MELLITUS
     Dosage: 1 DF: 1000 UNIT NOS
     Route: 048
     Dates: start: 20091120
  5. ARCOXIA [Suspect]
     Dosage: DOSE:120(UNITS NOT SPECIFIED).

REACTIONS (3)
  - TRANSAMINASES INCREASED [None]
  - ASPARTATE AMINOTRANSFERASE INCREASED [None]
  - ALANINE AMINOTRANSFERASE INCREASED [None]
